FAERS Safety Report 11715010 (Version 3)
Quarter: 2015Q4

REPORT INFORMATION
  Report Type: Report from Study
  Country: US (occurrence: US)
  Receive Date: 20151109
  Receipt Date: 20151229
  Transmission Date: 20160304
  Serious: Yes (Hospitalization, Other)
  Sender: FDA-Public Use
  Company Number: US-ELI_LILLY_AND_COMPANY-US201510009555

PATIENT
  Age: 76 Year
  Sex: Male
  Weight: 80.9 kg

DRUGS (6)
  1. PACLITAXEL, ABI-007 PROTEIN BOUND [Suspect]
     Active Substance: PACLITAXEL
     Dosage: 100 MG/M2, CYCLICAL
     Route: 065
     Dates: start: 20151015, end: 20151015
  2. GEMCITABINE HYDROCHLORIDE. [Suspect]
     Active Substance: GEMCITABINE HYDROCHLORIDE
     Dosage: 800 MG/M2, CYCLICAL
     Route: 065
     Dates: start: 20151015, end: 20151015
  3. ACETYLSALICYLIC ACID [Concomitant]
     Active Substance: ASPIRIN
  4. PACLITAXEL, ABI-007 PROTEIN BOUND [Suspect]
     Active Substance: PACLITAXEL
     Indication: PANCREATIC CARCINOMA METASTATIC
     Dosage: 125 MG/M2, CYCLICAL
     Route: 065
     Dates: start: 20150611
  5. DEXAMETHASONE. [Concomitant]
     Active Substance: DEXAMETHASONE
  6. GEMCITABINE HYDROCHLORIDE. [Suspect]
     Active Substance: GEMCITABINE HYDROCHLORIDE
     Indication: PANCREATIC CARCINOMA METASTATIC
     Dosage: 1000 MG/M2, CYCLICAL
     Route: 065
     Dates: start: 20150611

REACTIONS (10)
  - Deep vein thrombosis [Recovering/Resolving]
  - Prostatic obstruction [Unknown]
  - Colitis [Recovering/Resolving]
  - Respiratory failure [Recovered/Resolved]
  - Peptic ulcer perforation [Unknown]
  - Pulmonary embolism [Recovering/Resolving]
  - Pneumonitis [Unknown]
  - Pulmonary oedema [Unknown]
  - Troponin I increased [Unknown]
  - Pneumocystis jirovecii pneumonia [Recovering/Resolving]

NARRATIVE: CASE EVENT DATE: 20151022
